FAERS Safety Report 9670855 (Version 2)
Quarter: 2013Q4

REPORT INFORMATION
  Report Type: Report from Study
  Country: KR (occurrence: KR)
  Receive Date: 20131106
  Receipt Date: 20131218
  Transmission Date: 20140711
  Serious: No
  Sender: FDA-Public Use
  Company Number: PHHY2013KR124401

PATIENT
  Age: 61 Year
  Sex: Female

DRUGS (5)
  1. AMN107 [Suspect]
     Indication: CHRONIC MYELOID LEUKAEMIA
     Dosage: 800 MG, PER DAY
     Route: 048
     Dates: start: 20130930, end: 20131007
  2. AMN107 [Suspect]
     Dosage: 600 MG, PER DAY
     Route: 048
     Dates: start: 20131017, end: 20131031
  3. TACOPEN [Concomitant]
     Indication: BONE PAIN
     Dosage: 3 DF, UNK
     Route: 048
     Dates: start: 20130924, end: 20131006
  4. AMARYL M [Concomitant]
     Indication: DIABETES MELLITUS
     Dosage: 1 DF, UNK
     Route: 048
     Dates: start: 20131028
  5. VILDAGLIPTIN [Concomitant]
     Indication: DIABETES MELLITUS
     Dosage: 1 DF, UNK
     Route: 048
     Dates: start: 20131011

REACTIONS (6)
  - Tinea versicolour [Recovered/Resolved]
  - Palmar-plantar erythrodysaesthesia syndrome [Recovered/Resolved]
  - Nausea [Recovered/Resolved]
  - Eye swelling [Recovered/Resolved]
  - Decreased appetite [Recovered/Resolved]
  - Abdominal distension [Recovered/Resolved]
